FAERS Safety Report 4264769-1 (Version None)
Quarter: 2004Q1

REPORT INFORMATION
  Report Type: 
  Country: None (occurrence: None)
  Receive Date: 20040105
  Receipt Date: 20031219
  Transmission Date: 20041129
  Serious: Yes (Congenital Anomaly)
  Sender: FDA-Public Use
  Company Number: STA-AE-03-MTX-204

PATIENT
  Sex: Male

DRUGS (3)
  1. METHOTREXATE [Suspect]
     Indication: ABORTION INDUCED
     Dosage: 50 MG/M^2 1X PER 1 CYC, UNK
  2. MISOPROSTOL [Suspect]
     Indication: ABORTION INDUCED
     Dosage: 800 UG 1X PER 1CYC,UNK
  3. METHYLDOPA [Concomitant]

REACTIONS (22)
  - ABNORMAL PALMAR/PLANTAR CREASES [None]
  - ADACTYLY [None]
  - BRACHYCEPHALY [None]
  - CONGENITAL EYE DISORDER [None]
  - CONGENITAL FACIAL NERVE HYPOPLASIA [None]
  - CONGENITAL GENITAL MALFORMATION MALE [None]
  - CONGENITAL NAIL DISORDER [None]
  - CONGENITAL NOSE MALFORMATION [None]
  - DELAYED FONTANELLE CLOSURE [None]
  - DEVELOPMENTAL COORDINATION DISORDER [None]
  - FINGER HYPOPLASIA [None]
  - FOETAL GROWTH RETARDATION [None]
  - HAEMANGIOMA [None]
  - HYPOSPADIAS [None]
  - LOW SET EARS [None]
  - MATERNAL DRUGS AFFECTING FOETUS [None]
  - MULTIPLE CONGENITAL ABNORMALITIES [None]
  - NECK DEFORMITY [None]
  - OLIGOHYDRAMNIOS [None]
  - PECTUS EXCAVATUM [None]
  - SYNDACTYLY [None]
  - TOE DEFORMITY [None]
